FAERS Safety Report 8388709-9 (Version None)
Quarter: 2012Q2

REPORT INFORMATION
  Report Type: 
  Country: None (occurrence: None)
  Receive Date: 20120527
  Receipt Date: 20120514
  Transmission Date: 20120825
  Serious: Yes (Other)
  Sender: FDA-Public Use
  Company Number: US-BAYER-2012-048559

PATIENT
  Age: 76 Year
  Sex: Female

DRUGS (2)
  1. NAPROXEN SODIUM [Suspect]
     Indication: ARTHRITIS
     Dosage: 220 MG, PRN, BOTTLE COUNT 100S
     Route: 048
  2. ASPIRIN [Suspect]
     Indication: ARTHRITIS
     Route: 048

REACTIONS (9)
  - CHILLS [None]
  - EYE SWELLING [None]
  - ERYTHEMA [None]
  - LOSS OF CONSCIOUSNESS [None]
  - ARTHRITIS [None]
  - SOMNOLENCE [None]
  - TREMOR [None]
  - SWELLING FACE [None]
  - NAUSEA [None]
